FAERS Safety Report 6973089-3 (Version None)
Quarter: 2010Q3

REPORT INFORMATION
  Report Type: 
  Country: None (occurrence: None)
  Receive Date: 20100909
  Receipt Date: 20100902
  Transmission Date: 20110219
  Serious: Yes (Death, Other)
  Sender: FDA-Public Use
  Company Number: US-SANOFI-AVENTIS-2010SA053816

PATIENT
  Age: 52 Year
  Sex: Female

DRUGS (8)
  1. LOVENOX [Suspect]
     Route: 065
     Dates: start: 20070109
  2. ARIXTRA [Suspect]
     Route: 058
     Dates: start: 20070105, end: 20070109
  3. MULTI-VITAMINS [Concomitant]
  4. ASCORBIC ACID [Concomitant]
  5. OSCAL D [Concomitant]
  6. HYDROCHLOROTHIAZIDE [Concomitant]
  7. K-DUR [Concomitant]
  8. MAALOX [Concomitant]

REACTIONS (4)
  - COMA [None]
  - PLATELET COUNT DECREASED [None]
  - PNEUMOTHORAX [None]
  - RESPIRATORY ARREST [None]
